FAERS Safety Report 9976029 (Version 2)
Quarter: 2014Q1

REPORT INFORMATION
  Report Type: Spontaneous
  Country: US (occurrence: US)
  Receive Date: 20140306
  Receipt Date: 20140306
  Transmission Date: 20141002
  Serious: Yes (Hospitalization)
  Sender: FDA-Public Use
  Company Number: US-FRI-1000053007

PATIENT
  Age: 73 Year
  Sex: Female

DRUGS (13)
  1. FETZIMA [Suspect]
     Indication: DEPRESSION
     Dosage: 20 MG
     Dates: start: 20140113, end: 20140114
  2. FETZIMA [Suspect]
     Dosage: 40 MG
     Dates: start: 20140115, end: 20140116
  3. FETZIMA [Suspect]
     Indication: DEPRESSION
     Dosage: 20 MG
     Dates: start: 20140122
  4. KLONOPIN [Suspect]
  5. AMLODIPINE [Concomitant]
     Dosage: 10 MG
  6. BUMETANIDE [Concomitant]
     Dosage: 1 MG
  7. LAMOTRIGINE [Concomitant]
     Dosage: 200 MG
  8. METOPROLOL [Concomitant]
     Dosage: 50 MG
  9. OMEPRAZOLE [Concomitant]
     Dosage: 20 MG
  10. RENVELA [Concomitant]
     Dosage: 800 MG
  11. SENSIPAR [Concomitant]
     Dosage: 30 MG
  12. SODIUM CARBONATE [Concomitant]
     Dosage: 20 MG
  13. VIT D3 [Concomitant]
     Dosage: 1000 IU

REACTIONS (3)
  - Intentional overdose [Recovered/Resolved]
  - Hypoventilation [Recovered/Resolved]
  - Confusional state [Recovered/Resolved]
